FAERS Safety Report 23552476 (Version 4)
Quarter: 2024Q3

REPORT INFORMATION
  Report Type: Spontaneous
  Country: US (occurrence: US)
  Receive Date: 20240222
  Receipt Date: 20240731
  Transmission Date: 20241017
  Serious: No
  Sender: BRISTOL MYERS SQUIBB
  Company Number: US-BRISTOL-MYERS SQUIBB COMPANY-2024-027949

PATIENT
  Age: 70 Year
  Sex: Female
  Weight: 49.44 kg

DRUGS (1)
  1. REVLIMID [Suspect]
     Active Substance: LENALIDOMIDE
     Indication: Plasma cell myeloma
     Dosage: FREQUENCY: ONCE DAILY ON THE DAYS OF DIALYSIS, TAKE AFTER DIALYSIS TREATMENT.
     Route: 048
     Dates: start: 202312

REACTIONS (13)
  - Steal syndrome [Unknown]
  - Hypoaesthesia [Unknown]
  - Skin discolouration [Unknown]
  - Peripheral coldness [Unknown]
  - Treatment noncompliance [Unknown]
  - Urticaria [Unknown]
  - Constipation [Unknown]
  - Brain fog [Unknown]
  - Chills [Unknown]
  - Fatigue [Unknown]
  - Muscle spasms [Unknown]
  - Headache [Recovering/Resolving]
  - Gastrooesophageal reflux disease [Recovering/Resolving]
